FAERS Safety Report 5196207-9 (Version None)
Quarter: 2006Q4

REPORT INFORMATION
  Report Type: 
  Country: None (occurrence: None)
  Receive Date: 20061222
  Receipt Date: 20061218
  Transmission Date: 20070319
  Serious: Yes (Life-Threatening)
  Sender: FDA-Public Use
  Company Number: 863#3#2006-00017

PATIENT
  Age: 91 Year
  Sex: Female

DRUGS (5)
  1. IDROLAX (MACROGOL) [Suspect]
     Dosage: 10 G  (10 G 1 IN 1 DAY(S)) ORAL
     Route: 048
     Dates: start: 20060629, end: 20060821
  2. POTASSIUM CHLORIDE [Suspect]
     Dosage: ORAL
     Route: 048
     Dates: start: 20060724, end: 20060821
  3. DIGOXIN [Concomitant]
  4. ACENOCOUMAROL (ACENOCOUMAROL) [Concomitant]
  5. CITALOPRAM HYDROBROMIDE [Concomitant]

REACTIONS (3)
  - APNOEIC ATTACK [None]
  - CONFUSIONAL STATE [None]
  - LOCKED-IN SYNDROME [None]
